FAERS Safety Report 5872294-7 (Version None)
Quarter: 2008Q3

REPORT INFORMATION
  Report Type: 
  Country: None (occurrence: None)
  Receive Date: 20080905
  Receipt Date: 20080904
  Transmission Date: 20090109
  Serious: Yes (Other)
  Sender: FDA-Public Use
  Company Number: AU-WYE-H04359308

PATIENT

DRUGS (1)
  1. CORDARONE [Suspect]
     Dosage: NOT PROVIDED-50 MG/ML AMPOULE
     Route: 042

REACTIONS (1)
  - NONSPECIFIC REACTION [None]
